FAERS Safety Report 24336162 (Version 1)
Quarter: 2024Q3

REPORT INFORMATION
  Report Type: Report from Study
  Country: ID (occurrence: ID)
  Receive Date: 20240919
  Receipt Date: 20240919
  Transmission Date: 20241016
  Serious: No
  Sender: ROCHE
  Company Number: ID-ROCHE-3427266

PATIENT
  Age: 52 Year
  Sex: Male

DRUGS (13)
  1. OSELTAMIVIR [Suspect]
     Active Substance: OSELTAMIVIR
     Indication: COVID-19
     Route: 065
  2. ZINC [Concomitant]
     Active Substance: ZINC
  3. VITAMIN C [Concomitant]
     Active Substance: ASCORBIC ACID
  4. POVIDONE-IODINE [Concomitant]
     Active Substance: POVIDONE-IODINE
  5. DOMPERIDONE [Concomitant]
     Active Substance: DOMPERIDONE
  6. LEVOFLOKSASIN [Concomitant]
  7. PANTOPRAZOLE [Concomitant]
     Active Substance: PANTOPRAZOLE
  8. HEPARIN [Concomitant]
     Active Substance: HEPARIN SODIUM
  9. VITAMIN D3 [Concomitant]
     Active Substance: CHOLECALCIFEROL
  10. RAMIPRIL [Concomitant]
     Active Substance: RAMIPRIL
  11. ROSUVASTATIN [Concomitant]
     Active Substance: ROSUVASTATIN\ROSUVASTATIN CALCIUM
  12. METFORMIN [Concomitant]
     Active Substance: METFORMIN HYDROCHLORIDE
  13. SUCRALFATE [Concomitant]
     Active Substance: SUCRALFATE

REACTIONS (3)
  - Off label use [Unknown]
  - Hypersensitivity [Unknown]
  - Haematocrit decreased [Unknown]
